FAERS Safety Report 13772317 (Version 1)
Quarter: 2017Q3

REPORT INFORMATION
  Report Type: Spontaneous
  Country: US (occurrence: US)
  Receive Date: 20170720
  Receipt Date: 20170720
  Transmission Date: 20171127
  Serious: Yes (Hospitalization, Other)
  Sender: FDA-Public Use
  Company Number: US-MYLANLABS-2017M1042885

PATIENT

DRUGS (6)
  1. BENZATROPINE [Suspect]
     Active Substance: BENZTROPINE
     Indication: AUTISM SPECTRUM DISORDER
  2. GUANFACINE. [Concomitant]
     Active Substance: GUANFACINE
     Indication: PRODUCT USED FOR UNKNOWN INDICATION
     Route: 030
  3. LITHIUM. [Suspect]
     Active Substance: LITHIUM
     Indication: AUTISM SPECTRUM DISORDER
  4. CHLORPROMAZINE. [Suspect]
     Active Substance: CHLORPROMAZINE
     Indication: AUTISM SPECTRUM DISORDER
     Route: 030
  5. LORAZEPAM. [Concomitant]
     Active Substance: LORAZEPAM
     Indication: PRODUCT USED FOR UNKNOWN INDICATION
     Route: 030
  6. ZIPRASIDONE. [Suspect]
     Active Substance: ZIPRASIDONE
     Indication: AUTISM SPECTRUM DISORDER
     Route: 030

REACTIONS (2)
  - Neuroleptic malignant syndrome [Recovered/Resolved]
  - Catatonia [Recovered/Resolved]
